FAERS Safety Report 6209899-X (Version None)
Quarter: 2009Q2

REPORT INFORMATION
  Report Type: 
  Country: None (occurrence: None)
  Receive Date: 20090601
  Receipt Date: 20090518
  Transmission Date: 20091009
  Serious: Yes (Other)
  Sender: FDA-Public Use
  Company Number: PL-PFIZER INC-2009216455

PATIENT
  Age: 55 Year

DRUGS (4)
  1. ZELDOX [Suspect]
     Dosage: FREQUENCY: 3XDAY,
     Route: 030
     Dates: start: 20090428
  2. ZELDOX [Suspect]
     Indication: SCHIZOPHRENIA
     Dosage: FREQUENCY: 2XDAY,
     Route: 048
     Dates: start: 20090430, end: 20090509
  3. TRANXENE [Suspect]
     Indication: PSYCHOTIC DISORDER
     Route: 030
     Dates: start: 20090509, end: 20090509
  4. AMITRIPTYLINE [Concomitant]
     Route: 048
     Dates: start: 20090417, end: 20090428

REACTIONS (7)
  - ALTERED STATE OF CONSCIOUSNESS [None]
  - ANXIETY [None]
  - BLOOD PRESSURE INCREASED [None]
  - BODY TEMPERATURE INCREASED [None]
  - EXTRAPYRAMIDAL DISORDER [None]
  - HEART RATE INCREASED [None]
  - PSYCHOTIC DISORDER [None]
